FAERS Safety Report 7743859-2 (Version None)
Quarter: 2011Q3

REPORT INFORMATION
  Report Type: 
  Country: None (occurrence: None)
  Receive Date: 20110912
  Receipt Date: 20101130
  Transmission Date: 20111222
  Serious: Yes (Hospitalization)
  Sender: FDA-Public Use
  Company Number: US-GLAXOSMITHKLINE-A0898964A

PATIENT
  Sex: Female

DRUGS (1)
  1. AVANDIA [Suspect]
     Indication: TYPE 2 DIABETES MELLITUS
     Dosage: 4MG IN THE MORNING
     Route: 048

REACTIONS (4)
  - MYOCARDIAL INFARCTION [None]
  - PULMONARY OEDEMA [None]
  - CARDIOVASCULAR DISORDER [None]
  - RESPIRATORY FAILURE [None]
